FAERS Safety Report 9287752 (Version 3)
Quarter: 2014Q1

REPORT INFORMATION
  Report Type: Spontaneous
  Country: US (occurrence: US)
  Receive Date: 20130514
  Receipt Date: 20140128
  Transmission Date: 20141002
  Serious: Yes (Other)
  Sender: FDA-Public Use
  Company Number: US-PFIZER INC-2012311684

PATIENT
  Age: 55 Year
  Sex: Male

DRUGS (2)
  1. INLYTA [Suspect]
     Indication: RENAL NEOPLASM
     Dosage: 5 MG, 2X/DAY (BY MOUTH TAKE 1 TABLET TWICE A DAY)
     Route: 048
     Dates: start: 20120913
  2. INLYTA [Suspect]
     Dosage: 5 MG, 2X/DAY (1 TABLET BY MOUTH TWICE A DAY)
     Route: 048
     Dates: start: 20120917

REACTIONS (1)
  - Haemorrhage [Unknown]
